FAERS Safety Report 4826144-8 (Version None)
Quarter: 2005Q4

REPORT INFORMATION
  Report Type: 
  Country: None (occurrence: None)
  Receive Date: 20051109
  Receipt Date: 20051031
  Transmission Date: 20060501
  Serious: Yes (Other)
  Sender: FDA-Public Use
  Company Number: 2003-12-1463

PATIENT
  Age: 66 Year
  Sex: Female

DRUGS (10)
  1. PROVENTIL-HFA [Suspect]
     Indication: ASTHMA
     Dosage: ORAL AER INH
     Route: 048
     Dates: start: 20030530
  2. . [Concomitant]
  3. NIASPAN [Concomitant]
  4. PREMARIN [Concomitant]
  5. SYNTHROID [Concomitant]
  6. ADVAIR DISKUS 100/50 [Concomitant]
  7. ULTRAM [Concomitant]
  8. PREVACID [Concomitant]
  9. CALCIUM GLUCONATE [Concomitant]
  10. CEFUROXIME [Concomitant]

REACTIONS (20)
  - AGEUSIA [None]
  - CHEMICAL INJURY [None]
  - DEVICE FAILURE [None]
  - DRUG TOXICITY [None]
  - DYSGEUSIA [None]
  - GLOSSITIS [None]
  - GLOSSODYNIA [None]
  - INCORRECT DOSE ADMINISTERED [None]
  - INJURY [None]
  - LIP BLISTER [None]
  - LUNG INFECTION [None]
  - OEDEMA PERIPHERAL [None]
  - ORAL DISCHARGE [None]
  - ORAL PAIN [None]
  - OSTEOLYSIS [None]
  - PALPITATIONS [None]
  - RHINITIS [None]
  - SJOGREN'S SYNDROME [None]
  - TONGUE BLISTERING [None]
  - TONGUE DISORDER [None]
